FAERS Safety Report 5118670-1 (Version None)
Quarter: 2006Q3

REPORT INFORMATION
  Report Type: 
  Country: None (occurrence: None)
  Receive Date: 20060927
  Receipt Date: 20060920
  Transmission Date: 20061208
  Serious: Yes (Hospitalization, Other)
  Sender: FDA-Public Use
  Company Number: ITWYE300916JAN06

PATIENT
  Age: 44 Year
  Sex: Male

DRUGS (4)
  1. RAPAMUNE [Suspect]
     Indication: PROPHYLAXIS AGAINST TRANSPLANT REJECTION
     Dosage: ORAL;  ORAL;    3 MG 1X PER 1 DAY ORAL
     Route: 048
     Dates: start: 20060109, end: 20060101
  2. RAPAMUNE [Suspect]
     Indication: PROPHYLAXIS AGAINST TRANSPLANT REJECTION
     Dosage: ORAL;  ORAL;    3 MG 1X PER 1 DAY ORAL
     Route: 048
     Dates: start: 20051202, end: 20060107
  3. RAPAMUNE [Suspect]
     Indication: PROPHYLAXIS AGAINST TRANSPLANT REJECTION
     Dosage: ORAL;  ORAL;    3 MG 1X PER 1 DAY ORAL
     Route: 048
     Dates: start: 20060108, end: 20060108
  4. CYCLOSPORINE [Concomitant]

REACTIONS (2)
  - HYPERTENSION [None]
  - KIDNEY TRANSPLANT REJECTION [None]
